FAERS Safety Report 6633255-3 (Version None)
Quarter: 2010Q1

REPORT INFORMATION
  Report Type: 
  Country: None (occurrence: None)
  Receive Date: 20100312
  Receipt Date: 20100302
  Transmission Date: 20100710
  Serious: Yes (Other)
  Sender: FDA-Public Use
  Company Number: IN-PFIZER INC-2010027206

PATIENT
  Age: 29 Year
  Sex: Female

DRUGS (9)
  1. DALACIN [Suspect]
     Indication: OSTEOMYELITIS CHRONIC
     Dosage: 600 MG, 3X/DAY
     Route: 042
     Dates: start: 20100225, end: 20100304
  2. CEFOPERAZONE SODIUM/SULBACTAM SODIUM [Concomitant]
     Dosage: 1 GR TO 2 GR 2X/DAY
     Route: 042
  3. PARACETAMOL [Concomitant]
     Dosage: UNK
     Route: 048
  4. CHYMORAL [Concomitant]
     Dosage: UNK
     Route: 048
  5. RANTAC [Concomitant]
     Dosage: UNK
     Route: 048
  6. FERROUS FUMARATE/FOLIC ACID [Concomitant]
     Dosage: UNK
     Route: 048
  7. SHELCAL [Concomitant]
     Dosage: UNK
     Route: 048
  8. ULTRACET [Concomitant]
     Dosage: UNK
     Route: 048
  9. DIGENE GEL [Concomitant]
     Dosage: 2 TSP
     Route: 048

REACTIONS (3)
  - DYSPEPSIA [None]
  - HEADACHE [None]
  - TREMOR [None]
